FAERS Safety Report 16636738 (Version 1)
Quarter: 2019Q3

REPORT INFORMATION
  Report Type: Spontaneous
  Country: US (occurrence: US)
  Receive Date: 20190613
  Receipt Date: 20190613
  Transmission Date: 20191004
  Serious: Yes (Life-Threatening)
  Sender: FDA-Public Use
  Company Number: None

PATIENT
  Age: 64 Year
  Sex: Male
  Weight: 79 kg

DRUGS (1)
  1. CIPROFLOXACIN. [Suspect]
     Active Substance: CIPROFLOXACIN
     Indication: HYDRONEPHROSIS
     Route: 048
     Dates: start: 20190510

REACTIONS (4)
  - Cardiac arrest [None]
  - Torsade de pointes [None]
  - Electrocardiogram QT prolonged [None]
  - Ventricular tachycardia [None]

NARRATIVE: CASE EVENT DATE: 20190512
